FAERS Safety Report 8523421-4 (Version None)
Quarter: 2012Q3

REPORT INFORMATION
  Report Type: 
  Country: None (occurrence: None)
  Receive Date: 20120713
  Receipt Date: 20120713
  Transmission Date: 20120928
  Serious: No
  Sender: FDA-Public Use
  Company Number: None

PATIENT
  Age: 90 Year
  Sex: Male
  Weight: 59.8 kg

DRUGS (1)
  1. METHOTREXATE [Suspect]
     Dosage: 5 MG QWEEK PO
     Route: 048
     Dates: start: 20110404, end: 20111210

REACTIONS (2)
  - RENAL FAILURE ACUTE [None]
  - PANCYTOPENIA [None]
